FAERS Safety Report 24123701 (Version 1)
Quarter: 2024Q3

REPORT INFORMATION
  Report Type: Spontaneous
  Country: US (occurrence: US)
  Receive Date: 20240723
  Receipt Date: 20240723
  Transmission Date: 20241017
  Serious: No
  Sender: OTSUKA
  Company Number: US-OTSUKA-2024_007288

PATIENT
  Age: 62 Year
  Sex: Male

DRUGS (3)
  1. REXULTI [Suspect]
     Active Substance: BREXPIPRAZOLE
     Indication: Schizoaffective disorder
     Dosage: 5 MG
     Route: 065
  2. REXULTI [Suspect]
     Active Substance: BREXPIPRAZOLE
     Indication: Major depression
  3. REXULTI [Suspect]
     Active Substance: BREXPIPRAZOLE
     Indication: Psychotic disorder

REACTIONS (7)
  - Product dose omission issue [Unknown]
  - Off label use [Unknown]
  - Insurance issue [Unknown]
  - Therapeutic response shortened [Unknown]
  - Product use issue [Unknown]
  - Overdose [Unknown]
  - Inability to afford medication [Unknown]
